FAERS Safety Report 9613345 (Version 2)
Quarter: 2013Q4

REPORT INFORMATION
  Report Type: Spontaneous
  Country: US (occurrence: US)
  Receive Date: 20131010
  Receipt Date: 20131010
  Transmission Date: 20140711
  Serious: Yes (Death, Hospitalization)
  Sender: FDA-Public Use
  Company Number: US-BAXTER-2013BAX037836

PATIENT
  Sex: Male

DRUGS (5)
  1. DIANEAL LOW CALCIUM [Suspect]
     Indication: RENAL FAILURE CHRONIC
     Route: 033
     Dates: end: 20130923
  2. DIANEAL LOW CALCIUM (ULTRABAG) [Suspect]
     Indication: PERITONEAL DIALYSIS
     Route: 033
     Dates: end: 20130923
  3. DIANEAL LOW CALCIUM (ULTRABAG) [Suspect]
     Indication: RENAL FAILURE CHRONIC
  4. EXTRANEAL [Suspect]
     Indication: PERITONEAL DIALYSIS
     Route: 033
     Dates: end: 20130923
  5. EXTRANEAL [Suspect]
     Indication: RENAL FAILURE CHRONIC

REACTIONS (4)
  - Respiratory failure [Fatal]
  - Chronic obstructive pulmonary disease [Unknown]
  - Staphylococcal infection [Recovering/Resolving]
  - Small intestinal obstruction [Recovering/Resolving]
